FAERS Safety Report 20645055 (Version 1)
Quarter: 2022Q1

REPORT INFORMATION
  Report Type: Spontaneous
  Country: US (occurrence: US)
  Receive Date: 20220328
  Receipt Date: 20220328
  Transmission Date: 20220423
  Serious: No
  Sender: FDA-Public Use
  Company Number: US-LUPIN PHARMACEUTICALS INC.-2022-04168

PATIENT
  Age: 29 Year
  Sex: Female

DRUGS (5)
  1. TADALAFIL [Suspect]
     Active Substance: TADALAFIL
     Indication: Arterial occlusive disease
     Dosage: 10 MG
     Route: 048
  2. JUVEDERM ULTRA XC [Concomitant]
     Active Substance: HYALURONIC ACID\LIDOCAINE HYDROCHLORIDE
     Indication: Dermal filler injection
     Dosage: UNK
     Route: 023
  3. JUVEDERM ULTRA XC [Concomitant]
     Active Substance: HYALURONIC ACID\LIDOCAINE HYDROCHLORIDE
     Indication: Scar
  4. ASPIRIN [Concomitant]
     Active Substance: ASPIRIN
     Indication: Arterial occlusive disease
     Dosage: 325 MG
     Route: 048
  5. HYLENEX RECOMBINANT [Concomitant]
     Active Substance: HYALURONIDASE (HUMAN RECOMBINANT)
     Indication: Necrosis
     Dosage: 300 INTERNATIONAL UNIT
     Route: 065

REACTIONS (1)
  - Off label use [Unknown]
